FAERS Safety Report 6632680-4 (Version None)
Quarter: 2010Q1

REPORT INFORMATION
  Report Type: 
  Country: None (occurrence: None)
  Receive Date: 20100312
  Receipt Date: 20100305
  Transmission Date: 20100710
  Serious: Yes (Death, Hospitalization, Other)
  Sender: FDA-Public Use
  Company Number: US-ELI_LILLY_AND_COMPANY-US200904007323

PATIENT
  Sex: Male
  Weight: 121.54 kg

DRUGS (10)
  1. BYETTA [Suspect]
     Dosage: 5 UG, UNKNOWN
     Route: 065
     Dates: start: 20070701, end: 20070801
  2. BYETTA [Suspect]
     Dosage: 10 UG, 2/D
     Dates: start: 20071001, end: 20080501
  3. ACTOPLUS MET [Concomitant]
     Indication: TYPE 2 DIABETES MELLITUS
  4. PRAVACHOL [Concomitant]
     Indication: BLOOD CHOLESTEROL
  5. TRICOR [Concomitant]
  6. ASPIRIN [Concomitant]
  7. LISINOPRIL [Concomitant]
  8. LAMICTAL [Concomitant]
  9. ZYRTEC [Concomitant]
  10. VERAMYST [Concomitant]

REACTIONS (4)
  - ADENOCARCINOMA [None]
  - DEATH [None]
  - HYPOTENSION [None]
  - PANCREATITIS [None]
